FAERS Safety Report 7791546-7 (Version None)
Quarter: 2011Q4

REPORT INFORMATION
  Report Type: 
  Country: None (occurrence: None)
  Receive Date: 20111003
  Receipt Date: 20110920
  Transmission Date: 20120403
  Serious: Yes (Hospitalization)
  Sender: FDA-Public Use
  Company Number: US-BAYER-2011-052530

PATIENT
  Age: 20 Year
  Sex: Female
  Weight: 72 kg

DRUGS (9)
  1. LIDOCAINE HCL [Concomitant]
     Dosage: 2 %, UNK
     Route: 058
     Dates: start: 20090729
  2. DROSPIRENONE AND ETHINYL ESTRADIOL [Suspect]
     Indication: CONTRACEPTION
     Dosage: UNK
     Dates: start: 20050101, end: 20090801
  3. YASMIN [Suspect]
     Indication: CONTRACEPTION
     Dosage: UNK
     Dates: start: 20050101, end: 20090801
  4. VERAPAMIL [Concomitant]
     Dosage: 120 MG, QD
     Route: 048
  5. MIDAZOLAM HCL [Concomitant]
     Dosage: 1 MG, UNK
     Route: 042
     Dates: start: 20090729
  6. PERCOCET [Concomitant]
     Indication: PAIN
     Dosage: UNK
     Dates: start: 20090729
  7. YAZ [Suspect]
     Indication: CONTRACEPTION
     Dosage: UNK
     Dates: start: 20050101, end: 20090801
  8. FENTANYL [Concomitant]
     Dosage: UNK
     Route: 042
     Dates: start: 20090729
  9. ISUPREL [Concomitant]
     Dosage: UNK
     Route: 042
     Dates: start: 20090729

REACTIONS (4)
  - PULMONARY EMBOLISM [None]
  - INJURY [None]
  - DEEP VEIN THROMBOSIS [None]
  - PAIN [None]
